FAERS Safety Report 6933463-8 (Version None)
Quarter: 2010Q3

REPORT INFORMATION
  Report Type: 
  Country: None (occurrence: None)
  Receive Date: 20100820
  Receipt Date: 20100720
  Transmission Date: 20110219
  Serious: No
  Sender: FDA-Public Use
  Company Number: US-PFIZER INC-2010091199

PATIENT
  Sex: Female

DRUGS (1)
  1. DETROL LA [Suspect]
     Dosage: UNK

REACTIONS (5)
  - CONSTIPATION [None]
  - COUGH [None]
  - DRY MOUTH [None]
  - DYSURIA [None]
  - THERAPEUTIC RESPONSE DELAYED [None]
